FAERS Safety Report 9828444 (Version 2)
Quarter: 2014Q1

REPORT INFORMATION
  Report Type: Report from Study
  Country: US (occurrence: US)
  Receive Date: 20140117
  Receipt Date: 20140124
  Transmission Date: 20141002
  Serious: Yes (Hospitalization, Other)
  Sender: FDA-Public Use
  Company Number: US-PFIZER INC-2014015322

PATIENT
  Age: 49 Year
  Sex: Female

DRUGS (2)
  1. ENBREL [Suspect]
     Indication: RHEUMATOID ARTHRITIS
     Dosage: UNK UNK, QWK
     Dates: start: 20131003
  2. METHOTREXATE SODIUM [Suspect]
     Dosage: 90 ML, QWK
     Dates: start: 2010

REACTIONS (4)
  - Injection site infection [Recovered/Resolved]
  - Abscess [Recovered/Resolved]
  - Injection site bruising [Not Recovered/Not Resolved]
  - Acne [Not Recovered/Not Resolved]
